FAERS Safety Report 25545237 (Version 1)
Quarter: 2025Q3

REPORT INFORMATION
  Report Type: Spontaneous
  Country: EU (occurrence: EU)
  Receive Date: 20250711
  Receipt Date: 20250711
  Transmission Date: 20251021
  Serious: Yes (Death, Life-Threatening, Other)
  Sender: MERCK SHARP & DOHME LLC
  Company Number: EU-IPSEN Group, Research and Development-2025-09339

PATIENT
  Age: 42 Year
  Sex: Female

DRUGS (2)
  1. PEMBROLIZUMAB [Suspect]
     Active Substance: PEMBROLIZUMAB
     Indication: Gastroenteropancreatic neuroendocrine tumour disease
     Dates: start: 2025
  2. CABOZANTINIB [Suspect]
     Active Substance: CABOZANTINIB
     Indication: Off label use
     Route: 065
     Dates: start: 2025

REACTIONS (4)
  - Malignant neoplasm progression [Fatal]
  - Off label use [Unknown]
  - General physical health deterioration [Fatal]
  - Pneumonitis [Unknown]

NARRATIVE: CASE EVENT DATE: 20250101
